FAERS Safety Report 9769454 (Version 2)
Quarter: 2014Q1

REPORT INFORMATION
  Report Type: Report from Study
  Country: MX (occurrence: MX)
  Receive Date: 20131218
  Receipt Date: 20140327
  Transmission Date: 20141002
  Serious: Yes (Death)
  Sender: FDA-Public Use
  Company Number: PHHY2013MX148076

PATIENT
  Age: 38 Year
  Sex: Male

DRUGS (2)
  1. GLIVEC [Suspect]
     Indication: CHRONIC MYELOID LEUKAEMIA
     Dosage: 400 MG, UNK
  2. DEXTRAN [Concomitant]
     Indication: IRON DEFICIENCY
     Dosage: UNK UKN, UNK
     Route: 030
     Dates: start: 201310

REACTIONS (9)
  - Chronic myeloid leukaemia [Fatal]
  - Malignant neoplasm progression [Fatal]
  - Panic attack [Unknown]
  - Pallor [Unknown]
  - Cachexia [Unknown]
  - Bicytopenia [Unknown]
  - Anaemia [Unknown]
  - Weight decreased [Unknown]
  - Pyrexia [Unknown]
